FAERS Safety Report 12983190 (Version 1)
Quarter: 2016Q4

REPORT INFORMATION
  Report Type: Spontaneous
  Country: US (occurrence: US)
  Receive Date: 20161129
  Receipt Date: 20161129
  Transmission Date: 20170207
  Serious: No
  Sender: FDA-Public Use
  Company Number: None

PATIENT

DRUGS (2)
  1. VITAMIN B12 [Suspect]
     Active Substance: CYANOCOBALAMIN
     Route: 048
  2. VITAMIN B1 [Suspect]
     Active Substance: THIAMINE HYDROCHLORIDE
     Route: 048

REACTIONS (3)
  - Product label confusion [None]
  - Product name confusion [None]
  - Product packaging confusion [None]
